FAERS Safety Report 25364477 (Version 2)
Quarter: 2025Q2

REPORT INFORMATION
  Report Type: Spontaneous
  Country: JP (occurrence: JP)
  Receive Date: 20250527
  Receipt Date: 20250627
  Transmission Date: 20250717
  Serious: Yes (Other)
  Sender: OTSUKA
  Company Number: JP-OTSUKA-2021_009373

PATIENT
  Age: 8 Decade
  Sex: Female
  Weight: 46 kg

DRUGS (16)
  1. SAMSCA [Suspect]
     Active Substance: TOLVAPTAN
     Indication: Cardiac failure acute
     Dosage: 3.75 MG/DAYX1
     Route: 048
     Dates: start: 20210309, end: 20210314
  2. CEFTRIAXONE SODIUM [Suspect]
     Active Substance: CEFTRIAXONE SODIUM
     Indication: Pneumonia
     Dosage: 1 GX1/DAY
     Route: 042
     Dates: start: 20210312, end: 20210314
  3. HEPARIN SODIUM [Suspect]
     Active Substance: HEPARIN SODIUM
     Indication: Acute myocardial infarction
     Route: 041
     Dates: start: 20210304, end: 20210306
  4. CARPERITIDE [Concomitant]
     Active Substance: CARPERITIDE
     Indication: Product used for unknown indication
     Route: 041
     Dates: start: 20210304, end: 20210308
  5. CARPERITIDE [Concomitant]
     Active Substance: CARPERITIDE
     Route: 041
     Dates: start: 20210309, end: 20210324
  6. LINAGLIPTIN [Concomitant]
     Active Substance: LINAGLIPTIN
     Indication: Product used for unknown indication
     Route: 048
     Dates: end: 20210315
  7. VOGLIBOSE [Concomitant]
     Active Substance: VOGLIBOSE
     Indication: Product used for unknown indication
     Route: 048
     Dates: end: 20210315
  8. PITAVASTATIN CALCIUM [Concomitant]
     Active Substance: PITAVASTATIN CALCIUM
     Indication: Product used for unknown indication
     Route: 048
     Dates: end: 20210315
  9. FEBUXOSTAT [Concomitant]
     Active Substance: FEBUXOSTAT
     Indication: Product used for unknown indication
     Route: 048
     Dates: end: 20210315
  10. FUROSEMIDE [Concomitant]
     Active Substance: FUROSEMIDE
     Indication: Product used for unknown indication
     Route: 048
     Dates: end: 20210315
  11. VONOPRAZAN FUMARATE [Concomitant]
     Active Substance: VONOPRAZAN FUMARATE
     Indication: Product used for unknown indication
     Route: 048
     Dates: end: 20210315
  12. VONOPRAZAN FUMARATE [Concomitant]
     Active Substance: VONOPRAZAN FUMARATE
     Dosage: 20 MG/DAY
     Route: 048
     Dates: start: 20210408
  13. POLAPREZINC [Concomitant]
     Active Substance: POLAPREZINC
     Indication: Product used for unknown indication
     Route: 048
     Dates: end: 20210315
  14. BISOPROLOL FUMARATE [Concomitant]
     Active Substance: BISOPROLOL FUMARATE
     Indication: Product used for unknown indication
     Route: 048
  15. ASPIRIN [Concomitant]
     Active Substance: ASPIRIN
     Indication: Product used for unknown indication
     Route: 048
     Dates: start: 20210304
  16. PRASUGREL HYDROCHLORIDE [Concomitant]
     Active Substance: PRASUGREL HYDROCHLORIDE
     Indication: Product used for unknown indication
     Route: 048
     Dates: start: 20210304

REACTIONS (11)
  - Cholangitis [Unknown]
  - Cholecystitis [Unknown]
  - Vascular device infection [Unknown]
  - Multiple organ dysfunction syndrome [Unknown]
  - Disseminated intravascular coagulation [Unknown]
  - Hepatic function abnormal [Recovered/Resolved]
  - Heparin-induced thrombocytopenia test positive [Unknown]
  - Serum ferritin increased [Unknown]
  - Platelet count decreased [Recovering/Resolving]
  - Pyrexia [Recovered/Resolved]
  - Underdose [Unknown]

NARRATIVE: CASE EVENT DATE: 20210309
